FAERS Safety Report 5284489-4 (Version None)
Quarter: 2007Q1

REPORT INFORMATION
  Report Type: 
  Country: None (occurrence: None)
  Receive Date: 20070330
  Receipt Date: 20070330
  Transmission Date: 20070707
  Serious: Yes (Other)
  Sender: FDA-Public Use
  Company Number: None

PATIENT
  Age: 43 Year
  Sex: Female
  Weight: 104.3273 kg

DRUGS (2)
  1. ADVAIR DISKUS 250/50 [Suspect]
     Indication: ASTHMA
     Dosage: 250/50 TWICE A DAY
  2. ALBUTEROL [Suspect]
     Indication: ASTHMA
     Dosage: 17 G AS NEEDED

REACTIONS (2)
  - MEDICATION ERROR [None]
  - TOTAL LUNG CAPACITY DECREASED [None]
